FAERS Safety Report 13928126 (Version 1)
Quarter: 2017Q3

REPORT INFORMATION
  Report Type: Report from Study
  Country: BR (occurrence: BR)
  Receive Date: 20170901
  Receipt Date: 20170901
  Transmission Date: 20171127
  Serious: Yes (Hospitalization, Other)
  Sender: FDA-Public Use
  Company Number: PHHY2017BR126210

PATIENT
  Sex: Female

DRUGS (3)
  1. DUOTRAV BAC-FREE [Suspect]
     Active Substance: TIMOLOL\TRAVOPROST
     Indication: GLAUCOMA
     Dosage: 1 GTT, QD (EACH EYE AT NIGHT)
     Route: 047
  2. LACRIFILM [Concomitant]
     Active Substance: CARBOXYMETHYLCELLULOSE SODIUM
     Indication: PRODUCT USED FOR UNKNOWN INDICATION
     Dosage: UNK
     Route: 065
  3. PREDNISONE. [Suspect]
     Active Substance: PREDNISONE
     Indication: PRODUCT USED FOR UNKNOWN INDICATION
     Route: 065

REACTIONS (11)
  - Gait disturbance [Unknown]
  - Swelling face [Unknown]
  - Fall [Recovering/Resolving]
  - Visual impairment [Unknown]
  - Myasthenia gravis [Unknown]
  - Body height decreased [Unknown]
  - Eyelid ptosis [Not Recovered/Not Resolved]
  - Accident [Recovering/Resolving]
  - Eyelash injury [Unknown]
  - Amnesia [Recovering/Resolving]
  - Weight increased [Unknown]
